FAERS Safety Report 8801309 (Version 1)
Quarter: 2012Q4

REPORT INFORMATION
  Report Type: 
  Country: IT (occurrence: IT)
  Receive Date: 20120921
  Receipt Date: 20120921
  Transmission Date: 20130627
  Serious: Yes (Hospitalization, Other)
  Sender: FDA-Public Use
  Company Number: IT-ROXANE LABORATORIES, INC.-2012-RO-01857RO

PATIENT
  Age: 86 Year
  Sex: Female

DRUGS (12)
  1. DIGOXIN [Suspect]
     Indication: ATRIAL FLUTTER
     Dosage: 0.0625 mg
  2. DIGOXIN [Suspect]
     Dosage: 0.125 mg
  3. FUROSEMIDE [Suspect]
     Indication: MYOCARDIAL ISCHAEMIA
     Dosage: 25 mg
  4. FUROSEMIDE [Suspect]
     Route: 042
  5. ENALAPRIL [Suspect]
     Indication: MYOCARDIAL ISCHAEMIA
     Dosage: 2.5 mg
  6. CARVEDILOL [Suspect]
     Indication: MYOCARDIAL ISCHAEMIA
     Dosage: 12.5 mg
  7. ISOSORBIDE MONONITRATE [Suspect]
     Indication: MYOCARDIAL ISCHAEMIA
     Dosage: 80 mg
  8. ACETYLSALICYLIC ACID [Suspect]
     Indication: MYOCARDIAL ISCHAEMIA
     Dosage: 100 mg
  9. OESOMEPRAZOLE [Suspect]
     Indication: MYOCARDIAL ISCHAEMIA
     Dosage: 20 mg
  10. SPIRONOLACTONE [Suspect]
     Indication: MYOCARDIAL ISCHAEMIA
     Dosage: 25 mg
  11. SPIRONOLACTONE [Suspect]
     Dosage: 50 mg
     Route: 048
  12. NITROGLYCERIN [Suspect]

REACTIONS (4)
  - Cardioactive drug level increased [Unknown]
  - Atrial flutter [Unknown]
  - Left ventricular failure [Unknown]
  - Ventricular extrasystoles [None]
